FAERS Safety Report 25183817 (Version 1)
Quarter: 2025Q2

REPORT INFORMATION
  Report Type: Spontaneous
  Country: US (occurrence: US)
  Receive Date: 20250410
  Receipt Date: 20250410
  Transmission Date: 20250716
  Serious: No
  Sender: SANOFI AVENTIS
  Company Number: US-SA-2025SA102402

PATIENT
  Age: 40 Year
  Sex: Female

DRUGS (1)
  1. DUPIXENT [Suspect]
     Active Substance: DUPILUMAB
     Dosage: UNK UNK, QW
     Route: 058

REACTIONS (6)
  - Condition aggravated [Unknown]
  - Dysphagia [Unknown]
  - Chest discomfort [Unknown]
  - Ear discomfort [Unknown]
  - Pruritus [Unknown]
  - Vision blurred [Unknown]
